FAERS Safety Report 9375768 (Version 2)
Quarter: 2013Q3

REPORT INFORMATION
  Report Type: Spontaneous
  Country: FR (occurrence: FR)
  Receive Date: 20130628
  Receipt Date: 20130723
  Transmission Date: 20140515
  Serious: Yes (Other)
  Sender: FDA-Public Use
  Company Number: FR-ABBOTT-13P-056-1104202-00

PATIENT
  Age: 35 Year
  Sex: Male
  Weight: 105 kg

DRUGS (3)
  1. HUMIRA [Suspect]
     Indication: PSORIASIS
     Route: 058
     Dates: start: 20120405, end: 20130115
  2. HUMIRA [Suspect]
  3. KENZEN [Concomitant]
     Indication: HYPERTENSION
     Route: 048
     Dates: start: 201202

REACTIONS (2)
  - Vitiligo [Not Recovered/Not Resolved]
  - Drug ineffective [Unknown]
